FAERS Safety Report 19984386 (Version 1)
Quarter: 2021Q4

REPORT INFORMATION
  Report Type: Spontaneous
  Country: US (occurrence: US)
  Receive Date: 20211022
  Receipt Date: 20211022
  Transmission Date: 20220304
  Serious: Yes (Other)
  Sender: FDA-Public Use
  Company Number: None

PATIENT
  Age: 50 Year
  Sex: Female
  Weight: 73.8 kg

DRUGS (1)
  1. BACTRIM [Suspect]
     Active Substance: SULFAMETHOXAZOLE\TRIMETHOPRIM
     Indication: Staphylococcal infection
     Dosage: ?          OTHER STRENGTH:800 MG I THINK;
     Route: 048
     Dates: start: 20211013, end: 20211021

REACTIONS (10)
  - Urticaria [None]
  - Rash [None]
  - Swelling [None]
  - Eyelid disorder [None]
  - Swelling face [None]
  - Erythema [None]
  - Rash [None]
  - Livedo reticularis [None]
  - Facial pain [None]
  - Lip disorder [None]

NARRATIVE: CASE EVENT DATE: 20211020
